FAERS Safety Report 5270762-2 (Version None)
Quarter: 2007Q1

REPORT INFORMATION
  Report Type: 
  Country: None (occurrence: None)
  Receive Date: 20070315
  Receipt Date: 20070302
  Transmission Date: 20070707
  Serious: Yes (Hospitalization)
  Sender: FDA-Public Use
  Company Number: MEDI-0004939

PATIENT
  Age: 7 Month
  Sex: 0

DRUGS (1)
  1. SYNAGIS [Suspect]
     Indication: ANTIVIRAL PROPHYLAXIS
     Dosage: 50 MG, INTRAMUSCULAR
     Route: 030
     Dates: start: 20060105, end: 20060227

REACTIONS (2)
  - DYSPNOEA [None]
  - GASTROENTERITIS [None]
